FAERS Safety Report 5310384-8 (Version None)
Quarter: 2007Q2

REPORT INFORMATION
  Report Type: 
  Country: None (occurrence: None)
  Receive Date: 20070423
  Receipt Date: 20070418
  Transmission Date: 20071010
  Serious: Yes (Disabling)
  Sender: FDA-Public Use
  Company Number: 2007S1000087

PATIENT
  Age: 4 Day
  Sex: Female

DRUGS (3)
  1. INOMAX [Suspect]
     Indication: LUNG DISORDER
     Dosage: 5 PPM; INH POW; INH
     Route: 055
     Dates: start: 20070403
  2. INOMAX [Suspect]
     Indication: PROPHYLAXIS
     Dosage: 5 PPM; INH POW; INH
     Route: 055
     Dates: start: 20070403
  3. TPN (TPN) [Concomitant]

REACTIONS (2)
  - INTRAVENTRICULAR HAEMORRHAGE NEONATAL [None]
  - NEONATAL HYPOTENSION [None]
